FAERS Safety Report 6405622-4 (Version None)
Quarter: 2009Q4

REPORT INFORMATION
  Report Type: 
  Country: None (occurrence: None)
  Receive Date: 20091014
  Receipt Date: 20030407
  Transmission Date: 20100525
  Serious: Yes (Death)
  Sender: FDA-Public Use
  Company Number: 2009008904

PATIENT
  Sex: Male

DRUGS (1)
  1. ACTIQ [Suspect]
     Indication: BREAKTHROUGH PAIN
     Dosage: (800 MCG), BU
     Route: 002

REACTIONS (1)
  - MALIGNANT NEOPLASM PROGRESSION [None]
